FAERS Safety Report 4395416-6 (Version None)
Quarter: 2004Q3

REPORT INFORMATION
  Report Type: 
  Country: None (occurrence: None)
  Receive Date: 20040712
  Receipt Date: 20040712
  Transmission Date: 20050211
  Serious: Yes (Hospitalization)
  Sender: FDA-Public Use
  Company Number: None

PATIENT
  Age: 73 Year
  Sex: Male
  Weight: 75.8 kg

DRUGS (1)
  1. ADENOSINE [Suspect]
     Dosage: 6MG ONE TIME INTRAVENOUS
     Route: 042
     Dates: start: 20040224, end: 20040224

REACTIONS (1)
  - CARDIAC ARREST [None]
